FAERS Safety Report 13344818 (Version 1)
Quarter: 2017Q1

REPORT INFORMATION
  Report Type: Spontaneous
  Country: US (occurrence: US)
  Receive Date: 20170316
  Receipt Date: 20170316
  Transmission Date: 20170428
  Serious: No
  Sender: FDA-Public Use
  Company Number: None

PATIENT
  Age: 60 Year
  Sex: Female
  Weight: 78.47 kg

DRUGS (1)
  1. GABAPENTIN 300 MG [Suspect]
     Active Substance: GABAPENTIN
     Indication: NEUROPATHY PERIPHERAL
     Dosage: 300 MG 1 CAP AM 2 CAPS PM ORAL
     Route: 048
     Dates: start: 20100602

REACTIONS (2)
  - Urticaria [None]
  - Pharyngeal oedema [None]

NARRATIVE: CASE EVENT DATE: 2010
